FAERS Safety Report 19790871 (Version 1)
Quarter: 2021Q3

REPORT INFORMATION
  Report Type: Spontaneous
  Country: JP (occurrence: JP)
  Receive Date: 20210906
  Receipt Date: 20210906
  Transmission Date: 20211014
  Serious: Yes (Hospitalization, Other)
  Sender: FDA-Public Use
  Company Number: JP-B.I. PHARMACEUTICALS,INC./RIDGEFIELD-2021-BI-122106

PATIENT
  Sex: Female

DRUGS (1)
  1. BI?SIFROL [Suspect]
     Active Substance: PRAMIPEXOLE
     Indication: PARKINSON^S DISEASE
     Route: 045

REACTIONS (3)
  - Incorrect route of product administration [Unknown]
  - Dementia [Unknown]
  - Enteral nutrition [Unknown]
